FAERS Safety Report 19742341 (Version 1)
Quarter: 2021Q3

REPORT INFORMATION
  Report Type: Spontaneous
  Country: JP (occurrence: JP)
  Receive Date: 20210824
  Receipt Date: 20210824
  Transmission Date: 20211014
  Serious: Yes (Other)
  Sender: FDA-Public Use
  Company Number: JP-BRECKENRIDGE PHARMACEUTICAL, INC.-2115586

PATIENT
  Age: 89 Year
  Sex: Male
  Weight: 61.5 kg

DRUGS (12)
  1. DONEPEZIL HYDROCHLORIDE. [Concomitant]
     Active Substance: DONEPEZIL HYDROCHLORIDE
  2. GLIMEPIRIDE. [Concomitant]
     Active Substance: GLIMEPIRIDE
  3. TADALAFIL. [Concomitant]
     Active Substance: TADALAFIL
  4. ALOGLIPTIN BENZOATE [Concomitant]
     Active Substance: ALOGLIPTIN BENZOATE
  5. SENNOSIDES. [Concomitant]
     Active Substance: SENNOSIDES
  6. LANSOPRAZOLE. [Suspect]
     Active Substance: LANSOPRAZOLE
  7. EPINASTINE. [Suspect]
     Active Substance: EPINASTINE HYDROCHLORIDE
     Indication: RHINITIS ALLERGIC
     Route: 048
     Dates: start: 20210528, end: 20210723
  8. MAGNESIUM OXIDE. [Concomitant]
     Active Substance: MAGNESIUM OXIDE
  9. NAFTOPIDIL [Concomitant]
     Active Substance: NAFTOPIDIL
  10. AMITIZA [Concomitant]
     Active Substance: LUBIPROSTONE
  11. DUTASTERIDE. [Concomitant]
     Active Substance: DUTASTERIDE
  12. PITAVASTATIN. [Concomitant]
     Active Substance: PITAVASTATIN CALCIUM

REACTIONS (1)
  - Platelet count decreased [Recovering/Resolving]
